FAERS Safety Report 5759176-6 (Version None)
Quarter: 2008Q2

REPORT INFORMATION
  Report Type: 
  Country: None (occurrence: None)
  Receive Date: 20080604
  Receipt Date: 20080526
  Transmission Date: 20081010
  Serious: Yes (Hospitalization)
  Sender: FDA-Public Use
  Company Number: IN-ELI_LILLY_AND_COMPANY-IN200805005169

PATIENT
  Sex: Male
  Weight: 38 kg

DRUGS (43)
  1. TERIPARATIDE [Suspect]
     Indication: SPINAL FRACTURE
     Dosage: 20 UG, DAILY (1/D)
     Route: 058
     Dates: start: 20080219
  2. TIOTROPIUM BROMIDE [Concomitant]
     Indication: CHRONIC OBSTRUCTIVE PULMONARY DISEASE
     Dosage: 2 D/F, DAILY (1/D)
     Dates: start: 20080305
  3. FORMOTEROL FUMARATE [Concomitant]
     Indication: CHRONIC OBSTRUCTIVE PULMONARY DISEASE
     Dosage: 2 D/F, DAILY (1/D)
     Dates: start: 20080305
  4. DUOLIN [Concomitant]
     Indication: CHRONIC OBSTRUCTIVE PULMONARY DISEASE
     Dosage: 2 D/F, UNKNOWN
     Route: 055
     Dates: start: 20080305
  5. DUOLIN [Concomitant]
     Dosage: 2 D/F, 3/D
     Dates: start: 20080421
  6. FLUTICASONE PROPIONATE [Concomitant]
     Indication: CHRONIC OBSTRUCTIVE PULMONARY DISEASE
     Dosage: 2 D/F (125 MCG), UNKNOWN
     Route: 055
     Dates: start: 20080305
  7. AMARYL [Concomitant]
     Indication: TYPE 2 DIABETES MELLITUS
     Dosage: 1 MG, UNKNOWN
  8. AMARYL [Concomitant]
     Dosage: 1 MG, BEFORE DINNER
     Dates: start: 20080421
  9. ALPHA D3 [Concomitant]
     Indication: OSTEOPOROSIS
     Dosage: 1 UG, UNKNOWN
  10. ALPHA D3 [Concomitant]
     Dosage: 1 UG, DAILY (1/D)
     Dates: start: 20080421
  11. ATORVASTATIN [Concomitant]
     Indication: HYPERLIPIDAEMIA
     Dosage: 10 MG, UNKNOWN
  12. ATORVASTATIN [Concomitant]
     Dosage: 10 MG, DAILY (1/D)
     Dates: start: 20080421
  13. SHELCAL [Concomitant]
     Dosage: 500 MG, DAILY (1/D)
     Dates: start: 20080305
  14. CALCITONIN [Concomitant]
     Dosage: 1 D/F, EACH NOSTRIL 2/D
     Dates: start: 20080305
  15. PANTOPRAZOLE [Concomitant]
     Dosage: 40 MG, 2/D
     Dates: start: 20080305
  16. CLOTRIMAZOLE [Concomitant]
     Dosage: 1 D/F, 2/D
     Dates: start: 20080305
  17. METROGYL [Concomitant]
     Dosage: UNK, 2/D
     Dates: start: 20080305
  18. PREDNISOLONE [Concomitant]
     Dosage: 15 MG, 2/D
     Dates: start: 20080305
  19. PREDNISOLONE [Concomitant]
     Dosage: 5 MG, DAILY (1/D)
     Dates: start: 20080421
  20. GENTEAL [Concomitant]
     Dosage: UNK, 2/D
     Dates: start: 20080305
  21. REFRESH [Concomitant]
     Dosage: 1 D/F, 4-HOURLY
     Dates: start: 20080305
  22. DERIPHYLLIN [Concomitant]
     Dosage: 300 MG, 2/D
     Dates: start: 20080305
  23. PULMOCARE [Concomitant]
     Dosage: 30 G, 2/D
     Dates: start: 20080305
  24. VITAMIN B COMPLEX CAP [Concomitant]
     Dosage: 1 D/F, 3/D
     Dates: start: 20080305
  25. VITAMIN B COMPLEX CAP [Concomitant]
     Dosage: 1 D/F, DAILY (1/D)
     Dates: start: 20080421
  26. PROCHLORPERAZINE [Concomitant]
     Dosage: 0.5 D/F, 2/D
     Dates: start: 20080305
  27. NEUROBION /00176001/ [Concomitant]
     Dosage: 1 D/F, UNKNOWN
     Route: 030
     Dates: start: 20080305
  28. NEUROBION /00176001/ [Concomitant]
     Dosage: 1 D/F, QOD
     Route: 030
     Dates: start: 20080421
  29. ETORICOXIB [Concomitant]
     Dosage: UNK, 2/D
     Dates: start: 20080305
  30. LASILACTONE [Concomitant]
     Dosage: 50 MG, QOD
     Dates: start: 20080305
  31. CYANOCOBALAMIN [Concomitant]
     Dosage: 500 MG, 2/W
     Route: 030
     Dates: start: 20080421
  32. PAPAIN [Concomitant]
     Dosage: 1 D/F, AS NEEDED
     Dates: start: 20080421
  33. AZELASTINE HCL [Concomitant]
     Dosage: UNK, 2/D
     Dates: start: 20080421
  34. FLUTICASONE PROPIONATE [Concomitant]
     Dosage: UNK, 2/D
     Dates: start: 20080421
  35. LACTULOSE [Concomitant]
     Dosage: 30 ML, 3/D AFTER MEAL
     Dates: start: 20080421
  36. GANATON [Concomitant]
     Dosage: 50 MG, 3/D
     Dates: start: 20080421
  37. DIMETICONE [Concomitant]
     Dosage: UNK, 3/D
     Dates: start: 20080421
  38. PANCREATIN TRIPLE STRENGTH CAP [Concomitant]
     Dosage: UNK, 3/D
     Dates: start: 20080421
  39. TAMSULOSIN HCL [Concomitant]
     Dosage: 0.4 MG, DAILY (1/D)
     Dates: start: 20080421
  40. TEGASEROD [Concomitant]
     Dosage: 6 MG, 2/D
     Route: 048
     Dates: start: 20080421
  41. DIOCTYL SODIUM SULPHOSUCCINATE [Concomitant]
     Dosage: 200 MG, 3/D
     Dates: start: 20080421
  42. SODIUM PICOSULFATE [Concomitant]
     Dosage: 10 MG, AT BED TIME
     Dates: start: 20080421
  43. DOMSTAL [Concomitant]
     Dosage: 10 MG, UNKNOWN
     Dates: start: 20080421

REACTIONS (3)
  - ABDOMINAL DISCOMFORT [None]
  - DYSPNOEA [None]
  - PAIN IN EXTREMITY [None]
